FAERS Safety Report 8722369 (Version 2)
Quarter: 2013Q1

REPORT INFORMATION
  Report Type: Spontaneous
  Country: BR (occurrence: BR)
  Receive Date: 20120814
  Receipt Date: 20130207
  Transmission Date: 20140127
  Serious: No
  Sender: FDA-Public Use
  Company Number: PHHY2012BR069672

PATIENT
  Sex: Female
  Weight: 60 kg

DRUGS (5)
  1. RITALINA [Suspect]
     Indication: DEPRESSION
     Dosage: 10 MG, 1 DF, DAILY
     Route: 048
  2. PROCIMAX [Concomitant]
  3. BUPROPION [Concomitant]
  4. GLUCOSAMINE SULFATE [Concomitant]
  5. FRONTAL [Concomitant]

REACTIONS (1)
  - Drug prescribing error [Unknown]
